FAERS Safety Report 24715151 (Version 4)
Quarter: 2025Q1

REPORT INFORMATION
  Report Type: Report from Study
  Country: US (occurrence: US)
  Receive Date: 20241210
  Receipt Date: 20250205
  Transmission Date: 20250408
  Serious: Yes (Hospitalization, Other)
  Sender: TAKEDA
  Company Number: US-TAKEDA-2024TUS121131

PATIENT
  Sex: Male
  Weight: 83 kg

DRUGS (16)
  1. PONATINIB [Suspect]
     Active Substance: PONATINIB
     Indication: Gastrointestinal stromal tumour
     Dosage: 30 MILLIGRAM, QD
     Dates: start: 202412
  2. PONATINIB [Suspect]
     Active Substance: PONATINIB
     Indication: Gastric cancer
     Dosage: 30 MILLIGRAM, QD
     Dates: start: 202501
  3. LOSARTAN POTASSIUM AND HYDROCHLOROTHIAZIDE [Concomitant]
     Active Substance: HYDROCHLOROTHIAZIDE\LOSARTAN POTASSIUM
  4. HYDROCAD [Concomitant]
  5. CALTRATE WITH VITAMIN D [Concomitant]
     Active Substance: CALCIUM CARBONATE\CHOLECALCIFEROL
  6. MAGNESIUM [Concomitant]
     Active Substance: MAGNESIUM
  7. METOPROLOL SUCCINATE [Concomitant]
     Active Substance: METOPROLOL SUCCINATE
  8. AMLODIPINE BESYLATE [Concomitant]
     Active Substance: AMLODIPINE BESYLATE
  9. FLOMAX [Concomitant]
     Active Substance: TAMSULOSIN HYDROCHLORIDE
  10. LYRICA [Concomitant]
     Active Substance: PREGABALIN
  11. SYNTHROID [Concomitant]
     Active Substance: LEVOTHYROXINE SODIUM
  12. OCUVITE [Concomitant]
     Active Substance: VITAMINS
  13. LANTUS SOLOSTAR [Concomitant]
     Active Substance: INSULIN GLARGINE
  14. LASIX [Concomitant]
     Active Substance: FUROSEMIDE
  15. CEPHALEXIN [Concomitant]
     Active Substance: CEPHALEXIN
  16. HUMALOG [Concomitant]
     Active Substance: INSULIN LISPRO

REACTIONS (8)
  - Metastases to liver [Unknown]
  - Haemoglobin decreased [Unknown]
  - Fluid retention [Unknown]
  - Product dose omission issue [Unknown]
  - Off label use [Unknown]
  - Drug ineffective [Unknown]
  - Tremor [Recovered/Resolved]
  - Dyspnoea [Unknown]
